FAERS Safety Report 14091265 (Version 1)
Quarter: 2017Q4

REPORT INFORMATION
  Report Type: Spontaneous
  Country: US (occurrence: US)
  Receive Date: 20171016
  Receipt Date: 20171016
  Transmission Date: 20180321
  Serious: Yes (Other)
  Sender: FDA-Public Use
  Company Number: US-CELGENEUS-USA-20171003198

PATIENT
  Age: 47 Year
  Sex: Female

DRUGS (7)
  1. OTEZLA [Suspect]
     Active Substance: APREMILAST
     Indication: PSORIASIS
     Dosage: 60 MILLIGRAM
     Route: 048
     Dates: start: 201703
  2. LISINOPRIL AND HYDROCHLOROTHIAZIDE [Concomitant]
     Active Substance: HYDROCHLOROTHIAZIDE\LISINOPRIL
     Indication: HYPERTENSION
     Route: 065
  3. OMEPRAZOLE. [Concomitant]
     Active Substance: OMEPRAZOLE
     Indication: DYSPEPSIA
  4. XANAX [Concomitant]
     Active Substance: ALPRAZOLAM
     Indication: ANXIETY
     Route: 065
  5. OMEPRAZOLE. [Concomitant]
     Active Substance: OMEPRAZOLE
     Indication: GASTROOESOPHAGEAL REFLUX DISEASE
     Route: 065
  6. FOLIC ACID. [Concomitant]
     Active Substance: FOLIC ACID
     Indication: SUPPLEMENTATION THERAPY
     Route: 065
  7. SINGULAIR [Concomitant]
     Active Substance: MONTELUKAST SODIUM
     Indication: MULTIPLE ALLERGIES
     Route: 065

REACTIONS (1)
  - Abdominal pain [Unknown]

NARRATIVE: CASE EVENT DATE: 201703
